FAERS Safety Report 14457974 (Version 1)
Quarter: 2018Q1

REPORT INFORMATION
  Report Type: Spontaneous
  Country: US (occurrence: US)
  Receive Date: 20180125
  Receipt Date: 20180125
  Transmission Date: 20180509
  Serious: Yes (Hospitalization)
  Sender: FDA-Public Use
  Company Number: None

PATIENT
  Age: 4 Year
  Sex: Female
  Weight: 20 kg

DRUGS (3)
  1. MERCAPTOPURINE. [Suspect]
     Active Substance: MERCAPTOPURINE
     Dates: end: 20180114
  2. METHOTREXATE. [Concomitant]
     Active Substance: METHOTREXATE
     Dates: end: 20171207
  3. VINCRISTINE SULFATE. [Concomitant]
     Active Substance: VINCRISTINE SULFATE
     Dates: end: 20171207

REACTIONS (7)
  - Enterovirus infection [None]
  - Aspergillus infection [None]
  - Haemorrhage [None]
  - Pneumonia [None]
  - Rhinovirus infection [None]
  - Blood pressure decreased [None]
  - Acute kidney injury [None]

NARRATIVE: CASE EVENT DATE: 20180118
